FAERS Safety Report 4950574-7 (Version None)
Quarter: 2006Q1

REPORT INFORMATION
  Report Type: 
  Country: None (occurrence: None)
  Receive Date: 20060321
  Receipt Date: 20060321
  Transmission Date: 20060701
  Serious: Yes (Hospitalization)
  Sender: FDA-Public Use
  Company Number: None

PATIENT
  Age: 18 Year
  Sex: Female
  Weight: 107.0489 kg

DRUGS (4)
  1. YASMIN [Suspect]
     Indication: ORAL CONTRACEPTION
     Dosage: 1 PO DAILY
     Route: 048
  2. ADDERALL 10 [Concomitant]
  3. LEXAPRO [Concomitant]
  4. DAY QUIL [Concomitant]

REACTIONS (6)
  - DILATATION VENTRICULAR [None]
  - DYSPNOEA EXERTIONAL [None]
  - OXYGEN SATURATION DECREASED [None]
  - PLEURITIC PAIN [None]
  - PULMONARY EMBOLISM [None]
  - SINUS TACHYCARDIA [None]
